FAERS Safety Report 6053008-7 (Version None)
Quarter: 2009Q1

REPORT INFORMATION
  Report Type: 
  Country: None (occurrence: None)
  Receive Date: 20090127
  Receipt Date: 20090120
  Transmission Date: 20090719
  Serious: Yes (Hospitalization)
  Sender: FDA-Public Use
  Company Number: US-ASTRAZENECA-2009UW01700

PATIENT
  Age: 74 Year
  Sex: Female
  Weight: 58.1 kg

DRUGS (9)
  1. TENORMIN [Suspect]
     Indication: HYPERTENSION
     Route: 048
     Dates: start: 19940101
  2. FOSAMAX [Concomitant]
     Dates: start: 20080501, end: 20080601
  3. NORVASC [Concomitant]
  4. SINGULAIR [Concomitant]
  5. ALLEGRA [Concomitant]
  6. ZOCOR [Concomitant]
  7. ZOLOFT [Concomitant]
  8. CALCIUM [Concomitant]
  9. TAGAMET [Concomitant]

REACTIONS (4)
  - CATARACT [None]
  - CEREBROVASCULAR ACCIDENT [None]
  - HEARING IMPAIRED [None]
  - OEDEMA PERIPHERAL [None]
